FAERS Safety Report 17238759 (Version 1)
Quarter: 2020Q1

REPORT INFORMATION
  Report Type: Spontaneous
  Country: US (occurrence: US)
  Receive Date: 20200106
  Receipt Date: 20200106
  Transmission Date: 20200409
  Serious: No
  Sender: FDA-Public Use
  Company Number: US-PACIRA-201800065

PATIENT
  Age: 49 Year
  Sex: Female

DRUGS (1)
  1. EXPAREL [Suspect]
     Active Substance: BUPIVACAINE
     Indication: SURGERY
     Dosage: 266 MG, SINGLE, 20ML AROUND INCISION AREA, FREQUENCY : SINGLE
     Dates: start: 20181203, end: 20181203

REACTIONS (1)
  - Pain [Not Recovered/Not Resolved]
